FAERS Safety Report 20742508 (Version 1)
Quarter: 2022Q2

REPORT INFORMATION
  Report Type: Spontaneous
  Country: US (occurrence: US)
  Receive Date: 20220424
  Receipt Date: 20220424
  Transmission Date: 20220721
  Serious: No
  Sender: FDA-Public Use
  Company Number: US-BRISTOL-MYERS SQUIBB COMPANY-2022-023266

PATIENT
  Age: 83 Year
  Sex: Female
  Weight: 47.72 kg

DRUGS (1)
  1. REVLIMID [Suspect]
     Active Substance: LENALIDOMIDE
     Indication: Extranodal marginal zone B-cell lymphoma (BALT type)
     Dosage: 21 DAY ON 7 DAYS OFF
     Route: 048
     Dates: start: 20220318

REACTIONS (3)
  - Weight decreased [Recovering/Resolving]
  - Feeling abnormal [Recovering/Resolving]
  - Balance disorder [Recovering/Resolving]
